FAERS Safety Report 8303533-0 (Version None)
Quarter: 2012Q2

REPORT INFORMATION
  Report Type: 
  Country: None (occurrence: None)
  Receive Date: 20120423
  Receipt Date: 20120416
  Transmission Date: 20120825
  Serious: Yes (Other)
  Sender: FDA-Public Use
  Company Number: US-PFIZER INC-2012096062

PATIENT

DRUGS (1)
  1. CHANTIX [Suspect]
     Dosage: UNK
     Dates: start: 20090228

REACTIONS (8)
  - AGITATION [None]
  - MAJOR DEPRESSION [None]
  - AGGRESSION [None]
  - MOOD ALTERED [None]
  - ABNORMAL DREAMS [None]
  - ABNORMAL BEHAVIOUR [None]
  - ANXIETY [None]
  - SUICIDE ATTEMPT [None]
